FAERS Safety Report 24813758 (Version 1)
Quarter: 2025Q1

REPORT INFORMATION
  Report Type: Spontaneous
  Country: GB (occurrence: None)
  Receive Date: 20250107
  Receipt Date: 20250107
  Transmission Date: 20250408
  Serious: Yes (Other)
  Sender: DEXCEL
  Company Number: None

PATIENT
  Age: 61 Year
  Sex: Male

DRUGS (3)
  1. CHLORHEXIDINE [Suspect]
     Active Substance: CHLORHEXIDINE
     Indication: Adverse drug reaction
     Route: 050
     Dates: start: 20241223, end: 20241223
  2. METHYLPREDNISOLONE [Suspect]
     Active Substance: METHYLPREDNISOLONE
     Indication: Adverse drug reaction
     Dates: start: 20241223, end: 20241223
  3. LIDOCAINE [Suspect]
     Active Substance: LIDOCAINE
     Indication: Adverse drug reaction
     Dates: start: 20241223, end: 20241223

REACTIONS (1)
  - Loss of consciousness [Recovered/Resolved]

NARRATIVE: CASE EVENT DATE: 20241223
